FAERS Safety Report 4516532-1 (Version None)
Quarter: 2004Q4

REPORT INFORMATION
  Report Type: 
  Country: None (occurrence: None)
  Receive Date: 20041202
  Receipt Date: 20041123
  Transmission Date: 20050328
  Serious: Yes (Other)
  Sender: FDA-Public Use
  Company Number: GBWYE110514OCT04

PATIENT
  Sex: Female
  Weight: 64 kg

DRUGS (6)
  1. ENBREL [Suspect]
     Indication: RHEUMATOID ARTHRITIS
     Route: 058
     Dates: start: 20040326, end: 20040930
  2. PREDNISOLONE [Concomitant]
  3. CELEBREX [Concomitant]
  4. FOSAMAX [Concomitant]
  5. BENDROFLUAZIDE [Concomitant]
  6. ATENOLOL [Concomitant]

REACTIONS (2)
  - NAIL DISORDER [None]
  - VASCULITIS [None]
